FAERS Safety Report 4711626-X (Version None)
Quarter: 2005Q2

REPORT INFORMATION
  Report Type: 
  Country: None (occurrence: None)
  Receive Date: 20050629
  Receipt Date: 20050420
  Transmission Date: 20051028
  Serious: No
  Sender: FDA-Public Use
  Company Number: 05P-163-0298036-00

PATIENT
  Age: 54 Year
  Sex: Male

DRUGS (6)
  1. HUMIRA [Suspect]
     Indication: RHEUMATOID ARTHRITIS
     Dosage: 40 MG, 1 IN 3 WK, SUBCUTANEOUS;  40 MG, 1 IN 2 WK, SUBCUTANEOUS;  40 MG, 1 IN 4 WK, SUBCUTANEOUS
     Route: 058
     Dates: start: 20041101, end: 20050101
  2. HUMIRA [Suspect]
     Indication: RHEUMATOID ARTHRITIS
     Dosage: 40 MG, 1 IN 3 WK, SUBCUTANEOUS;  40 MG, 1 IN 2 WK, SUBCUTANEOUS;  40 MG, 1 IN 4 WK, SUBCUTANEOUS
     Route: 058
     Dates: start: 20050101, end: 20050301
  3. HUMIRA [Suspect]
     Indication: RHEUMATOID ARTHRITIS
     Dosage: 40 MG, 1 IN 3 WK, SUBCUTANEOUS;  40 MG, 1 IN 2 WK, SUBCUTANEOUS;  40 MG, 1 IN 4 WK, SUBCUTANEOUS
     Route: 058
     Dates: start: 20050401, end: 20050401
  4. CELECOXIB [Concomitant]
  5. ASPIRIN [Concomitant]
  6. PROPRANOLOL [Concomitant]

REACTIONS (1)
  - NEUROPATHY PERIPHERAL [None]
